FAERS Safety Report 11588676 (Version 5)
Quarter: 2016Q2

REPORT INFORMATION
  Report Type: Spontaneous
  Country: US (occurrence: US)
  Receive Date: 20151002
  Receipt Date: 20160628
  Transmission Date: 20160815
  Serious: Yes (Other)
  Sender: FDA-Public Use
  Company Number: US-WATSON-2015-21135

PATIENT
  Age: 69 Year
  Sex: Female
  Weight: 113 kg

DRUGS (18)
  1. VANCOMYCIN HCL (WATSON LABORATORIES) [Suspect]
     Active Substance: VANCOMYCIN
     Indication: WOUND INFECTION STAPHYLOCOCCAL
     Dosage: 750 MG, EVERY 12 H
     Route: 042
  2. SULFAMETHOXAZOLE-TRIMETHOPRIM (SMZ) [Suspect]
     Active Substance: SULFAMETHOXAZOLE\TRIMETHOPRIM
     Indication: PRODUCT USED FOR UNKNOWN INDICATION
     Dosage: UNK
     Route: 065
  3. PAROXETINE. [Concomitant]
     Active Substance: PAROXETINE
     Indication: PRODUCT USED FOR UNKNOWN INDICATION
     Dosage: UNK
     Route: 065
  4. RIFAMPIN. [Concomitant]
     Active Substance: RIFAMPIN
     Indication: WOUND INFECTION STAPHYLOCOCCAL
     Dosage: UNK
     Route: 048
  5. ZOSYN [Suspect]
     Active Substance: PIPERACILLIN SODIUM\TAZOBACTAM SODIUM
     Indication: WOUND INFECTION STAPHYLOCOCCAL
     Dosage: 3.375 G, Q6H
     Route: 042
  6. AMLODIPINE [Concomitant]
     Active Substance: AMLODIPINE BESYLATE
     Indication: PRODUCT USED FOR UNKNOWN INDICATION
     Dosage: UNK
     Route: 065
  7. DAPTOMYCIN. [Concomitant]
     Active Substance: DAPTOMYCIN
     Indication: WOUND INFECTION STAPHYLOCOCCAL
     Dosage: UNK
     Route: 042
  8. TOBRAMYCIN SULFATE (WATSON LABORATORIES) [Suspect]
     Active Substance: TOBRAMYCIN SULFATE
     Indication: WOUND INFECTION STAPHYLOCOCCAL
     Dosage: 10.8 G, 3.6 G  MIXED WITH COBALT CEMENT INJECTED INTO THE TIBIAL AND FEMORAL MOLDS
     Route: 050
  9. VANCOMYCIN HCL (WATSON LABORATORIES) [Suspect]
     Active Substance: VANCOMYCIN
     Dosage: 1 G, EVERY 12 H
     Route: 042
  10. MORPHINE [Concomitant]
     Active Substance: MORPHINE
     Indication: PRODUCT USED FOR UNKNOWN INDICATION
     Dosage: UNK
     Route: 065
  11. LISINOPRIL (WATSON LABORATORIES) [Suspect]
     Active Substance: LISINOPRIL
     Indication: PRODUCT USED FOR UNKNOWN INDICATION
     Dosage: 20 MG, DAILY
     Route: 048
  12. SOLIFENACIN [Concomitant]
     Active Substance: SOLIFENACIN
     Indication: PRODUCT USED FOR UNKNOWN INDICATION
     Dosage: UNK
     Route: 065
  13. HYDROCHLOROTHIAZIDE (ACTAVIS LABORATORIES UT) [Suspect]
     Active Substance: HYDROCHLOROTHIAZIDE
     Indication: PRODUCT USED FOR UNKNOWN INDICATION
     Dosage: UNK
     Route: 065
  14. CEPHALEXIN                         /00145501/ [Concomitant]
     Active Substance: CEPHALEXIN
     Indication: WOUND INFECTION STAPHYLOCOCCAL
     Dosage: UNK
     Route: 048
  15. VANCOMYCIN HCL (WATSON LABORATORIES) [Suspect]
     Active Substance: VANCOMYCIN
     Dosage: 12 G THEN 4 G MIXED WITH COBALT CEMENT INJECTED INTO THE TIBIAL AND FEMORAL MOLDS
     Route: 050
  16. ENALAPRIL (WATSON LABORATORIES) [Suspect]
     Active Substance: ENALAPRIL
     Indication: PRODUCT USED FOR UNKNOWN INDICATION
     Dosage: UNK
     Route: 065
  17. ACETAMINOPHEN\HYDROCODONE BITARTRATE [Concomitant]
     Active Substance: ACETAMINOPHEN\HYDROCODONE BITARTRATE
     Indication: PRODUCT USED FOR UNKNOWN INDICATION
     Dosage: UNK
     Route: 065
  18. DULOXETINE. [Concomitant]
     Active Substance: DULOXETINE
     Indication: PRODUCT USED FOR UNKNOWN INDICATION
     Dosage: UNK
     Route: 065

REACTIONS (2)
  - Acute kidney injury [Recovered/Resolved]
  - Drug level increased [Unknown]

NARRATIVE: CASE EVENT DATE: 20121207
